FAERS Safety Report 12232125 (Version 2)
Quarter: 2016Q2

REPORT INFORMATION
  Report Type: Report from Study
  Country: US (occurrence: US)
  Receive Date: 20160401
  Receipt Date: 20160415
  Transmission Date: 20160815
  Serious: No
  Sender: FDA-Public Use
  Company Number: PHEH2013US021487

PATIENT
  Age: 59 Year
  Sex: Male

DRUGS (3)
  1. DAILY MULTIVITAMIN [Concomitant]
     Active Substance: VITAMINS
     Indication: PRODUCT USED FOR UNKNOWN INDICATION
     Dosage: UNK
     Route: 065
  2. GLEEVEC [Suspect]
     Active Substance: IMATINIB MESYLATE
     Indication: GASTROINTESTINAL STROMAL TUMOUR
     Dosage: 400 MG, QD
     Route: 048
     Dates: start: 2005
  3. VITAMIN D [Concomitant]
     Active Substance: CHOLECALCIFEROL
     Indication: PRODUCT USED FOR UNKNOWN INDICATION
     Dosage: UNK
     Route: 065

REACTIONS (38)
  - Skin discolouration [Unknown]
  - Vertigo [Unknown]
  - Sinusitis [Recovering/Resolving]
  - Cough [Not Recovered/Not Resolved]
  - Pyrexia [Not Recovered/Not Resolved]
  - Parosmia [Unknown]
  - Feeling abnormal [Unknown]
  - Dizziness [Unknown]
  - Arthralgia [Unknown]
  - Night sweats [Unknown]
  - Asthenia [Unknown]
  - Thirst [Unknown]
  - Muscle injury [Unknown]
  - Sneezing [Not Recovered/Not Resolved]
  - Palpitations [Unknown]
  - Extraocular muscle paresis [Unknown]
  - Abdominal pain upper [Unknown]
  - Eyelid oedema [Unknown]
  - Muscle spasms [Unknown]
  - Pollakiuria [Unknown]
  - Dyspnoea [Unknown]
  - Insomnia [Unknown]
  - Visual impairment [Unknown]
  - Burning sensation [Unknown]
  - Memory impairment [Unknown]
  - Depression [Unknown]
  - Peripheral swelling [Unknown]
  - Contusion [Unknown]
  - Skin atrophy [Unknown]
  - Rhinorrhoea [Not Recovered/Not Resolved]
  - Vision blurred [Unknown]
  - Fatigue [Unknown]
  - Anxiety [Unknown]
  - Head discomfort [Unknown]
  - Confusional state [Unknown]
  - Diarrhoea [Unknown]
  - Blood creatine phosphokinase increased [Unknown]
  - Epistaxis [Not Recovered/Not Resolved]

NARRATIVE: CASE EVENT DATE: 20160229
